FAERS Safety Report 7362674-5 (Version None)
Quarter: 2011Q1

REPORT INFORMATION
  Report Type: 
  Country: None (occurrence: None)
  Receive Date: 20110321
  Receipt Date: 20110311
  Transmission Date: 20110831
  Serious: Yes (Hospitalization)
  Sender: FDA-Public Use
  Company Number: US-BIOGENIDEC-2011BI009380

PATIENT
  Age: 40 Year
  Sex: Female

DRUGS (1)
  1. TYSABRI [Suspect]
     Indication: MULTIPLE SCLEROSIS
     Route: 042
     Dates: start: 20090713, end: 20110131

REACTIONS (6)
  - INTERVERTEBRAL DISC PROTRUSION [None]
  - FALL [None]
  - PAIN IN EXTREMITY [None]
  - BACK PAIN [None]
  - INFLUENZA LIKE ILLNESS [None]
  - PAIN [None]
